FAERS Safety Report 21973318 (Version 2)
Quarter: 2023Q2

REPORT INFORMATION
  Report Type: Spontaneous
  Country: US (occurrence: US)
  Receive Date: 20230209
  Receipt Date: 20230406
  Transmission Date: 20230721
  Serious: No
  Sender: FDA-Public Use
  Company Number: US-SA-SAC20230208000617

PATIENT
  Age: 64 Year
  Sex: Female

DRUGS (4)
  1. KEVZARA [Suspect]
     Active Substance: SARILUMAB
     Indication: Rheumatoid arthritis
     Dosage: 200 MG, QOW
     Route: 058
     Dates: start: 202301
  2. HUMIRA [Concomitant]
     Active Substance: ADALIMUMAB
  3. ORENCIA [Concomitant]
     Active Substance: ABATACEPT
  4. ENBREL [Concomitant]
     Active Substance: ETANERCEPT

REACTIONS (1)
  - Arthralgia [Unknown]
